FAERS Safety Report 5528266-5 (Version None)
Quarter: 2007Q4

REPORT INFORMATION
  Report Type: 
  Country: None (occurrence: None)
  Receive Date: 20071109
  Receipt Date: 20070219
  Transmission Date: 20080405
  Serious: Yes (Hospitalization, Other)
  Sender: FDA-Public Use
  Company Number: PHEH2007US02275

PATIENT
  Age: 59 Year
  Sex: Female
  Weight: 83.9 kg

DRUGS (3)
  1. ESTRADERM [Suspect]
     Indication: MENOPAUSAL SYMPTOMS
     Dosage: 0.1 MG, TRANSDERMAL
     Route: 062
     Dates: start: 19930101, end: 20030101
  2. MEDROXYPROGESTERONE [Suspect]
     Indication: MENOPAUSAL SYMPTOMS
     Dosage: 2.5 MG, QD, ORAL
     Route: 048
     Dates: start: 19930101, end: 20030101
  3. RANITIDINE [Concomitant]

REACTIONS (25)
  - ARTHRALGIA [None]
  - BACK PAIN [None]
  - BENIGN OVARIAN TUMOUR [None]
  - BIOPSY BREAST ABNORMAL [None]
  - BONE DENSITY DECREASED [None]
  - BREAST CANCER IN SITU [None]
  - BREAST COSMETIC SURGERY [None]
  - BREAST DISCHARGE [None]
  - BREAST FIBROSIS [None]
  - BREAST RECONSTRUCTION [None]
  - CARPAL TUNNEL SYNDROME [None]
  - CERVICOBRACHIAL SYNDROME [None]
  - DEPRESSION [None]
  - DYSURIA [None]
  - FALL [None]
  - MUSCLE RUPTURE [None]
  - OESTROGEN RECEPTOR ASSAY POSITIVE [None]
  - OSTEOPENIA [None]
  - OSTEOPOROSIS [None]
  - PROGESTERONE RECEPTOR ASSAY POSITIVE [None]
  - PROSTHESIS IMPLANTATION [None]
  - SIMPLE MASTECTOMY [None]
  - SPINAL OSTEOARTHRITIS [None]
  - URINARY INCONTINENCE [None]
  - URINARY TRACT INFECTION [None]
